FAERS Safety Report 6474605-0 (Version None)
Quarter: 2009Q4

REPORT INFORMATION
  Report Type: 
  Country: None (occurrence: None)
  Receive Date: 20091204
  Receipt Date: 20090227
  Transmission Date: 20100525
  Serious: Yes (Hospitalization)
  Sender: FDA-Public Use
  Company Number: US-ELI_LILLY_AND_COMPANY-US200901003587

PATIENT
  Sex: Female
  Weight: 69.841 kg

DRUGS (7)
  1. FORTEO [Suspect]
     Dosage: 20 UG, UNK
  2. NITROGLYCERIN [Concomitant]
     Indication: CHEST PAIN
     Dosage: UNK, AS NEEDED
  3. ATENOLOL [Concomitant]
     Dosage: 50 MG, 2/D
  4. DIOVAN HCT [Concomitant]
     Dosage: UNK, DAILY (1/D)
  5. AMLODIPINE [Concomitant]
     Dosage: 5 MG, DAILY (1/D)
  6. SIMVASTATIN [Concomitant]
     Dosage: 20 MG, DAILY (1/D)
  7. ASPIRIN [Concomitant]
     Dosage: 81 MG, DAILY (1/D)

REACTIONS (4)
  - CORONARY ARTERY DISEASE [None]
  - INJECTION SITE HAEMATOMA [None]
  - INJECTION SITE MASS [None]
  - VESSEL PUNCTURE SITE HAEMATOMA [None]
